FAERS Safety Report 16584429 (Version 7)
Quarter: 2021Q1

REPORT INFORMATION
  Report Type: Report from Study
  Country: DE (occurrence: DE)
  Receive Date: 20190717
  Receipt Date: 20210208
  Transmission Date: 20210419
  Serious: Yes (Hospitalization, Other)
  Sender: FDA-Public Use
  Company Number: PHHY2019DE085448

PATIENT
  Age: 64 Year
  Sex: Female
  Weight: 139 kg

DRUGS (9)
  1. ERELZI [Suspect]
     Active Substance: ETANERCEPT-SZZS
     Indication: PSORIATIC ARTHROPATHY
     Dosage: 50 MG, QW
     Route: 058
     Dates: start: 20171127
  2. METHOTREXAT [Concomitant]
     Active Substance: METHOTREXATE
     Indication: PSORIATIC ARTHROPATHY
     Dosage: UNK
     Route: 048
     Dates: start: 20170929
  3. VIGANTOLETTEN [Concomitant]
     Active Substance: CHOLECALCIFEROL
     Indication: VITAMIN D DEFICIENCY
     Dosage: UNK
     Route: 048
     Dates: start: 20150210
  4. HCT [Concomitant]
     Active Substance: HYDROCHLOROTHIAZIDE
     Indication: HYPERTENSION
     Dosage: UNK
     Route: 065
     Dates: start: 20160111
  5. ASPIRIN. [Concomitant]
     Active Substance: ASPIRIN
     Indication: HYPERTENSION
     Dosage: UNK
     Route: 048
     Dates: start: 20160111
  6. PANTOZOL [Concomitant]
     Active Substance: PANTOPRAZOLE SODIUM
     Indication: AORTIC ANEURYSM
     Dosage: UNK
     Route: 048
     Dates: start: 2001
  7. SALBUTAMOL [Concomitant]
     Active Substance: ALBUTEROL
     Indication: CHRONIC OBSTRUCTIVE PULMONARY DISEASE
     Dosage: UNK
     Route: 065
     Dates: start: 20050714
  8. AMLODIPIN [Concomitant]
     Active Substance: AMLODIPINE BESYLATE
     Indication: HYPERTENSION
     Dosage: UNK
     Route: 065
     Dates: start: 20160111
  9. DELIX [Concomitant]
     Indication: HYPERTENSION
     Dosage: UNK
     Route: 065
     Dates: start: 20160111

REACTIONS (21)
  - Red blood cell sedimentation rate increased [Unknown]
  - Somnolence [Unknown]
  - Injection site pain [Unknown]
  - Respiratory failure [Recovered/Resolved]
  - Depression [Unknown]
  - Injection site bruising [Unknown]
  - Pneumonia [Recovered/Resolved]
  - C-reactive protein increased [Unknown]
  - Asthenia [Unknown]
  - Gait disturbance [Unknown]
  - Rheumatoid factor increased [Unknown]
  - Joint swelling [Unknown]
  - Injection site coldness [Unknown]
  - Anxiety [Unknown]
  - Injection site erythema [Unknown]
  - Injection site reaction [Unknown]
  - Pneumonia [Recovered/Resolved]
  - Arthralgia [Unknown]
  - Pain [Unknown]
  - Fatigue [Unknown]
  - Device difficult to use [Unknown]

NARRATIVE: CASE EVENT DATE: 20180219
